FAERS Safety Report 12564946 (Version 2)
Quarter: 2016Q3

REPORT INFORMATION
  Report Type: Spontaneous
  Country: DE (occurrence: DE)
  Receive Date: 20160718
  Receipt Date: 20160725
  Transmission Date: 20161109
  Serious: Yes (Death, Life-Threatening, Other)
  Sender: FDA-Public Use
  Company Number: DE-ACCORD-042413

PATIENT
  Age: 63 Year
  Sex: Female

DRUGS (7)
  1. CISPLATIN. [Suspect]
     Active Substance: CISPLATIN
     Indication: METASTASES TO CENTRAL NERVOUS SYSTEM
     Dosage: KOF; 100%
     Dates: start: 2014
  2. ETOPOSIDE. [Suspect]
     Active Substance: ETOPOSIDE
     Indication: METASTASES TO CENTRAL NERVOUS SYSTEM
     Dosage: KOF: 100%
     Dates: start: 2014
  3. MANNITOL. [Suspect]
     Active Substance: MANNITOL
     Indication: PRODUCT USED FOR UNKNOWN INDICATION
     Dates: start: 201410, end: 20141010
  4. MORPHINE [Concomitant]
     Active Substance: MORPHINE
     Dates: start: 201410
  5. LEVETIRACETAM. [Suspect]
     Active Substance: LEVETIRACETAM
     Indication: PRODUCT USED FOR UNKNOWN INDICATION
     Dates: start: 201410
  6. DEXAMETHASONE. [Suspect]
     Active Substance: DEXAMETHASONE
     Indication: PRODUCT USED FOR UNKNOWN INDICATION
     Dates: start: 201410, end: 20141010
  7. NALOXONE [Suspect]
     Active Substance: NALOXONE
     Indication: PRODUCT USED FOR UNKNOWN INDICATION
     Dates: start: 201410

REACTIONS (7)
  - Cytomegalovirus infection [Fatal]
  - Coma [Fatal]
  - Drug ineffective [Unknown]
  - Febrile neutropenia [Recovering/Resolving]
  - Thrombocytopenia [Unknown]
  - Off label use [Unknown]
  - Disorientation [Fatal]

NARRATIVE: CASE EVENT DATE: 2014
